FAERS Safety Report 23490660 (Version 1)
Quarter: 2024Q1

REPORT INFORMATION
  Report Type: Spontaneous
  Country: US (occurrence: None)
  Receive Date: 20240206
  Receipt Date: 20240206
  Transmission Date: 20240410
  Serious: No
  Sender: FDA-Public Use
  Company Number: US-ROCHE-3329722

PATIENT
  Age: 8 Year
  Sex: Female
  Weight: 19.068 kg

DRUGS (6)
  1. NUTROPIN AQ [Suspect]
     Active Substance: SOMATROPIN
     Indication: Failure to thrive
     Dosage: EXPIRY DATE: AUG-2023
     Route: 058
     Dates: start: 20230324
  2. NUTROPIN AQ [Suspect]
     Active Substance: SOMATROPIN
  3. NUTROPIN AQ [Suspect]
     Active Substance: SOMATROPIN
     Indication: Short stature
  4. NUTROPIN AQ [Suspect]
     Active Substance: SOMATROPIN
  5. FLINTSTONES MULTIPLE VITAMINS [Concomitant]
     Route: 048
  6. CLARITIN [Concomitant]
     Active Substance: LORATADINE

REACTIONS (7)
  - Device breakage [Unknown]
  - Injection site pain [Recovered/Resolved]
  - Device breakage [Unknown]
  - Device malfunction [Unknown]
  - Product quality issue [Unknown]
  - Device defective [Unknown]
  - Pain [Unknown]

NARRATIVE: CASE EVENT DATE: 20230404
